FAERS Safety Report 7998877-6 (Version None)
Quarter: 2011Q4

REPORT INFORMATION
  Report Type: 
  Country: None (occurrence: None)
  Receive Date: 20111221
  Receipt Date: 20111215
  Transmission Date: 20120403
  Serious: Yes (Other)
  Sender: FDA-Public Use
  Company Number: US-GLAXOSMITHKLINE-A0958301A

PATIENT
  Age: 76 Year
  Sex: Male

DRUGS (4)
  1. GLUCOPHAGE [Concomitant]
  2. NORVASC [Concomitant]
  3. LISINOPRIL [Concomitant]
  4. VOTRIENT [Suspect]
     Indication: RENAL CELL CARCINOMA
     Dosage: 800MG PER DAY
     Route: 048
     Dates: start: 20110401, end: 20111130

REACTIONS (8)
  - ASPARTATE AMINOTRANSFERASE ABNORMAL [None]
  - BLOOD GLUCOSE INCREASED [None]
  - HAEMOGLOBIN ABNORMAL [None]
  - ALANINE AMINOTRANSFERASE ABNORMAL [None]
  - HYPERTENSION [None]
  - ASTHENIA [None]
  - ABDOMINAL DISCOMFORT [None]
  - METASTASES TO LIVER [None]
